FAERS Safety Report 7513165-X (Version None)
Quarter: 2011Q2

REPORT INFORMATION
  Report Type: 
  Country: None (occurrence: None)
  Receive Date: 20110531
  Receipt Date: 20110524
  Transmission Date: 20111010
  Serious: Yes (Hospitalization)
  Sender: FDA-Public Use
  Company Number: CA-MERCK-1105USA03539

PATIENT
  Sex: Male

DRUGS (4)
  1. GLUCONORM (REPAGLINIDE) [Concomitant]
     Route: 065
  2. JANUVIA [Suspect]
     Route: 048
  3. METFORMIN [Concomitant]
     Route: 065
  4. INSULIN [Concomitant]
     Route: 065

REACTIONS (2)
  - PNEUMONIA [None]
  - BLOOD GLUCOSE DECREASED [None]
